FAERS Safety Report 12714830 (Version 1)
Quarter: 2016Q3

REPORT INFORMATION
  Report Type: Spontaneous
  Country: KR (occurrence: KR)
  Receive Date: 20160905
  Receipt Date: 20160905
  Transmission Date: 20161109
  Serious: Yes (Other)
  Sender: FDA-Public Use
  Company Number: KR-AMGEN-KORSP2016114230

PATIENT
  Sex: Female

DRUGS (5)
  1. G-LASTA [Suspect]
     Active Substance: PEGFILGRASTIM
     Indication: PRODUCT USED FOR UNKNOWN INDICATION
     Dosage: 6 MG, 1 DAY, UNK
     Route: 065
     Dates: start: 20150506, end: 20150506
  2. G-LASTA [Suspect]
     Active Substance: PEGFILGRASTIM
     Dosage: 6 MG, 1 DAY, UNK
     Route: 065
     Dates: start: 20150617, end: 20150617
  3. G-LASTA [Suspect]
     Active Substance: PEGFILGRASTIM
     Dosage: 6 MG, 1 DAY, UNK
     Route: 065
     Dates: start: 20150708, end: 20150708
  4. G-LASTA [Suspect]
     Active Substance: PEGFILGRASTIM
     Dosage: 6 MG, 1 DAY, UNK
     Route: 065
     Dates: start: 20150528, end: 20150528
  5. G-LASTA [Suspect]
     Active Substance: PEGFILGRASTIM
     Dosage: 6 MG, 1 DAY, UNK
     Route: 065
     Dates: start: 20150729, end: 20150729

REACTIONS (1)
  - Neutropenia [Unknown]

NARRATIVE: CASE EVENT DATE: 20150716
